FAERS Safety Report 24135227 (Version 1)
Quarter: 2024Q3

REPORT INFORMATION
  Report Type: Spontaneous
  Country: US (occurrence: US)
  Receive Date: 20240725
  Receipt Date: 20240725
  Transmission Date: 20241017
  Serious: No
  Sender: Haleon PLC
  Company Number: US-HALEON-2187887

PATIENT
  Sex: Female

DRUGS (5)
  1. ABREVA [Suspect]
     Active Substance: DOCOSANOL
     Indication: Eczema
  2. ABREVA [Suspect]
     Active Substance: DOCOSANOL
     Indication: Dry skin
  3. ABREVA [Suspect]
     Active Substance: DOCOSANOL
     Indication: Chapped lips
  4. ABREVA [Suspect]
     Active Substance: DOCOSANOL
     Indication: Lip dry
  5. ABREVA [Suspect]
     Active Substance: DOCOSANOL
     Indication: Oral herpes

REACTIONS (2)
  - Drug effective for unapproved indication [Unknown]
  - Product use in unapproved indication [Unknown]
